FAERS Safety Report 5485990-0 (Version None)
Quarter: 2007Q4

REPORT INFORMATION
  Report Type: 
  Country: None (occurrence: None)
  Receive Date: 20071015
  Receipt Date: 20071009
  Transmission Date: 20080405
  Serious: Yes (Other)
  Sender: FDA-Public Use
  Company Number: US-MERCK-0710USA02255

PATIENT
  Age: 48 Year
  Sex: Male

DRUGS (6)
  1. FOSAMAX [Suspect]
     Indication: OSTEOPENIA
     Route: 048
     Dates: start: 20050801
  2. PREDNISONE [Concomitant]
     Route: 048
  3. CELLCEPT [Concomitant]
     Route: 065
  4. ENALAPRIL MALEATE [Concomitant]
     Route: 065
  5. LOSARTAN POTASSIUM [Concomitant]
     Route: 065
  6. TACROLIMUS [Concomitant]
     Route: 065

REACTIONS (1)
  - FOCAL GLOMERULOSCLEROSIS [None]
